FAERS Safety Report 5096834-3 (Version None)
Quarter: 2006Q3

REPORT INFORMATION
  Report Type: 
  Country: None (occurrence: None)
  Receive Date: 20060906
  Receipt Date: 20060830
  Transmission Date: 20061208
  Serious: Yes (Congenital Anomaly, Other)
  Sender: FDA-Public Use
  Company Number: SE-RB-3828-2006

PATIENT
  Age: 1 Day
  Sex: Male

DRUGS (1)
  1. BUPRENORPHINE HCL [Suspect]
     Route: 064
     Dates: start: 20050101

REACTIONS (2)
  - DRUG EXPOSURE DURING PREGNANCY [None]
  - HERNIA CONGENITAL [None]
